FAERS Safety Report 22632618 (Version 1)
Quarter: 2023Q2

REPORT INFORMATION
  Report Type: Spontaneous
  Country: FR (occurrence: FR)
  Receive Date: 20230623
  Receipt Date: 20230623
  Transmission Date: 20230722
  Serious: Yes (Life-Threatening, Hospitalization)
  Sender: FDA-Public Use
  Company Number: None

PATIENT
  Age: 58 Year
  Sex: Male
  Weight: 72 kg

DRUGS (1)
  1. OZEMPIC [Suspect]
     Active Substance: SEMAGLUTIDE
     Indication: Type 2 diabetes mellitus
     Dosage: 1 DF, QW(ONE INJECTION PER WEEK ON TUESDAY)
     Route: 058
     Dates: start: 20220902, end: 20230502

REACTIONS (4)
  - Retinal haemorrhage [Recovering/Resolving]
  - Retinal detachment [Recovering/Resolving]
  - Blindness [Recovering/Resolving]
  - Vitreous floaters [Recovering/Resolving]

NARRATIVE: CASE EVENT DATE: 20221012
